FAERS Safety Report 23768315 (Version 1)
Quarter: 2024Q2

REPORT INFORMATION
  Report Type: Spontaneous
  Country: US (occurrence: None)
  Receive Date: 20240422
  Receipt Date: 20240422
  Transmission Date: 20240716
  Serious: Yes (Hospitalization, Other)
  Sender: FDA-Public Use
  Company Number: US-ROCHE-3547395

PATIENT
  Age: 75 Year
  Sex: Male

DRUGS (2)
  1. TNKASE [Suspect]
     Active Substance: TENECTEPLASE
     Indication: Ischaemic stroke
     Dosage: 1 TIME DOSE BOLUS OVER 5 MINUTES
     Route: 040
     Dates: start: 20230413, end: 20230413
  2. LISINOPRIL [Concomitant]
     Active Substance: LISINOPRIL

REACTIONS (3)
  - Off label use [Unknown]
  - Angioedema [Unknown]
  - Dysphonia [Unknown]

NARRATIVE: CASE EVENT DATE: 20230413
